FAERS Safety Report 7877441-3 (Version None)
Quarter: 2011Q4

REPORT INFORMATION
  Report Type: 
  Country: None (occurrence: None)
  Receive Date: 20111031
  Receipt Date: 20111026
  Transmission Date: 20120403
  Serious: Yes (Other)
  Sender: FDA-Public Use
  Company Number: US-PFIZER INC-2011262747

PATIENT
  Sex: Female
  Weight: 68.481 kg

DRUGS (8)
  1. LIPITOR [Suspect]
     Indication: BLOOD CHOLESTEROL INCREASED
     Dosage: 40 MG, DAILY
     Dates: start: 20110901
  2. POTASSIUM [Concomitant]
     Indication: DIURETIC THERAPY
     Dosage: UNK, DAILY
  3. WARFARIN SODIUM [Concomitant]
     Indication: ANTICOAGULANT THERAPY
     Dosage: 10 MG, DAILY
  4. CRESTOR [Suspect]
     Dosage: UNK
     Dates: start: 20110801, end: 20110101
  5. ACETYLSALICYLIC ACID [Concomitant]
     Dosage: 81 MG, DAILY
  6. AMIODARONE [Concomitant]
     Indication: HEART RATE
     Dosage: 200 MG, DAILY
  7. DIOVAN [Concomitant]
     Indication: BLOOD PRESSURE ABNORMAL
     Dosage: 320 MG, DAILY
  8. LIPITOR [Suspect]
     Indication: CARDIAC DISORDER

REACTIONS (2)
  - MYALGIA [None]
  - LIMB DISCOMFORT [None]
